FAERS Safety Report 6909534-9 (Version None)
Quarter: 2010Q3

REPORT INFORMATION
  Report Type: 
  Country: None (occurrence: None)
  Receive Date: 20100805
  Receipt Date: 20100727
  Transmission Date: 20110219
  Serious: Yes (Hospitalization)
  Sender: FDA-Public Use
  Company Number: JP-AMGEN-QUU428005

PATIENT
  Sex: Male

DRUGS (2)
  1. ENBREL [Suspect]
     Indication: RHEUMATOID ARTHRITIS
     Dosage: UNKNOWN
     Dates: start: 20100512, end: 20100625
  2. UNSPECIFIED STEROIDS [Concomitant]

REACTIONS (2)
  - HIP ARTHROPLASTY [None]
  - SUBCUTANEOUS ABSCESS [None]
